FAERS Safety Report 20557296 (Version 1)
Quarter: 2022Q1

REPORT INFORMATION
  Report Type: Spontaneous
  Country: US (occurrence: US)
  Receive Date: 20220307
  Receipt Date: 20220307
  Transmission Date: 20220423
  Serious: Yes (Other)
  Sender: FDA-Public Use
  Company Number: US-TAKEDA-2022TUS014656

PATIENT
  Sex: Male

DRUGS (1)
  1. ENTYVIO [Suspect]
     Active Substance: VEDOLIZUMAB
     Indication: Colitis ulcerative
     Dosage: UNK UNK, Q2WEEKS
     Route: 042
     Dates: start: 202202

REACTIONS (4)
  - Colitis ulcerative [Not Recovered/Not Resolved]
  - Chills [Not Recovered/Not Resolved]
  - Bone pain [Not Recovered/Not Resolved]
  - Hunger [Not Recovered/Not Resolved]
